FAERS Safety Report 7965029-5 (Version None)
Quarter: 2011Q4

REPORT INFORMATION
  Report Type: 
  Country: None (occurrence: None)
  Receive Date: 20111208
  Receipt Date: 20111128
  Transmission Date: 20120403
  Serious: Yes (Hospitalization)
  Sender: FDA-Public Use
  Company Number: US-BAYER-2011-039174

PATIENT
  Age: 20 Year
  Sex: Female
  Weight: 58.957 kg

DRUGS (4)
  1. ACETAMINOPHEN [Concomitant]
  2. TORADOL [Concomitant]
     Indication: PAIN
     Dosage: UNK
     Dates: start: 20091223
  3. YASMIN [Suspect]
     Indication: CONTRACEPTION
     Dosage: UNK
     Dates: start: 20060601, end: 20080601
  4. DROSPIRENONE AND ETHINYL ESTRADIOL [Suspect]
     Indication: CONTRACEPTION
     Dosage: UNK
     Dates: start: 20080701, end: 20091201

REACTIONS (2)
  - DEEP VEIN THROMBOSIS [None]
  - PAIN [None]
